FAERS Safety Report 18046837 (Version 1)
Quarter: 2020Q3

REPORT INFORMATION
  Report Type: Report from Study
  Country: US (occurrence: US)
  Receive Date: 20200720
  Receipt Date: 20200720
  Transmission Date: 20201103
  Serious: No
  Sender: FDA-Public Use
  Company Number: NVSC2020US198481

PATIENT
  Sex: Female

DRUGS (1)
  1. GILENYA [Suspect]
     Active Substance: FINGOLIMOD HYDROCHLORIDE
     Indication: MULTIPLE SCLEROSIS
     Dosage: EVERY 48 HOURS
     Route: 048
     Dates: start: 2014

REACTIONS (9)
  - Gait inability [Unknown]
  - Catheter placement [Unknown]
  - Balance disorder [Unknown]
  - Constipation [Unknown]
  - Temperature intolerance [Unknown]
  - General physical health deterioration [Unknown]
  - Feeding disorder [Unknown]
  - Off label use [Unknown]
  - Cognitive disorder [Unknown]
